FAERS Safety Report 23203143 (Version 1)
Quarter: 2023Q4

REPORT INFORMATION
  Report Type: Spontaneous
  Country: US (occurrence: US)
  Receive Date: 20231120
  Receipt Date: 20231120
  Transmission Date: 20240110
  Serious: Yes (Congenital Anomaly)
  Sender: FDA-Public Use
  Company Number: US-NOVOPROD-1140605

PATIENT
  Sex: Male

DRUGS (1)
  1. OZEMPIC [Suspect]
     Active Substance: SEMAGLUTIDE
     Indication: Product used for unknown indication
     Dosage: 2 MG, QW
     Route: 064

REACTIONS (2)
  - Chordee [Not Recovered/Not Resolved]
  - Foetal exposure during pregnancy [Recovered/Resolved]
